FAERS Safety Report 13657674 (Version 1)
Quarter: 2017Q2

REPORT INFORMATION
  Report Type: Other
  Country: US (occurrence: US)
  Receive Date: 20170615
  Receipt Date: 20170615
  Transmission Date: 20170830
  Serious: Yes (Other)
  Sender: FDA-Public Use
  Company Number: US-THE PROACTIV LLC-2022105

PATIENT
  Age: 33 Year
  Sex: Female

DRUGS (6)
  1. PROACTIV SOLUTION CLARIFYING NIGHT [Suspect]
     Active Substance: SALICYLIC ACID
     Route: 061
     Dates: start: 20170301, end: 20170519
  2. PROACTIV PLUS RETEXTURIZING TONER [Suspect]
     Active Substance: SALICYLIC ACID
     Route: 061
     Dates: start: 20170301, end: 20170519
  3. PROACTIVPLUS SKIN SMOOTHING EXFOLIATOR [Suspect]
     Active Substance: BENZOYL PEROXIDE
     Indication: ACNE
     Route: 061
     Dates: start: 20170301, end: 20170519
  4. PROACTIV PLUS PORE TARGETING TREATMENT [Suspect]
     Active Substance: BENZOYL PEROXIDE
     Route: 061
     Dates: start: 20170301, end: 20170519
  5. PROACTIV PLUS COMPLEXION PERFECTING HYDRATOR [Suspect]
     Active Substance: SALICYLIC ACID
     Route: 061
     Dates: start: 20170301, end: 20170519
  6. PROACTIV SOLUTION OIL FREE MOISTURE SPF 15 MOISTURIZER [Suspect]
     Active Substance: OCTINOXATE\ZINC OXIDE
     Route: 061
     Dates: start: 20170301, end: 20170519

REACTIONS (1)
  - Urticaria [Recovered/Resolved]

NARRATIVE: CASE EVENT DATE: 20170519
